FAERS Safety Report 5310476-3 (Version None)
Quarter: 2007Q2

REPORT INFORMATION
  Report Type: 
  Country: None (occurrence: None)
  Receive Date: 20070427
  Receipt Date: 20070418
  Transmission Date: 20071010
  Serious: Yes (Other)
  Sender: FDA-Public Use
  Company Number: GB-JNJFOC-20070404035

PATIENT
  Sex: Male
  Weight: 85 kg

DRUGS (7)
  1. REMICADE [Suspect]
     Indication: RHEUMATOID ARTHRITIS
     Route: 042
  2. METHOTREXATE [Concomitant]
  3. PREDNISOLONE [Concomitant]
  4. ESOMEPRAZOLE MAGNESIUM [Concomitant]
  5. FOLIC ACID [Concomitant]
  6. MYLERAN [Concomitant]
  7. TRAMADOL HCL [Concomitant]

REACTIONS (1)
  - BASAL CELL CARCINOMA [None]
